FAERS Safety Report 18422843 (Version 1)
Quarter: 2020Q4

REPORT INFORMATION
  Report Type: Spontaneous
  Country: US (occurrence: US)
  Receive Date: 20201023
  Receipt Date: 20201023
  Transmission Date: 20210114
  Serious: Yes (Hospitalization, Other)
  Sender: FDA-Public Use
  Company Number: US-PURDUE-USA-2020-0171668

PATIENT
  Sex: Female

DRUGS (2)
  1. OXYCONTIN [Suspect]
     Active Substance: OXYCODONE HYDROCHLORIDE
     Indication: PRODUCT USED FOR UNKNOWN INDICATION
     Dosage: UNKNOWN
     Route: 064
  2. HYDROCODONE BITARTRATE AND ACETAMINOPHEN [Suspect]
     Active Substance: ACETAMINOPHEN\HYDROCODONE BITARTRATE
     Indication: PRODUCT USED FOR UNKNOWN INDICATION
     Dosage: UNKNOWN
     Route: 065

REACTIONS (10)
  - Insomnia [Unknown]
  - Drug withdrawal syndrome neonatal [Unknown]
  - Crying [Not Recovered/Not Resolved]
  - High-pitched crying [Unknown]
  - Emotional distress [Unknown]
  - Affect lability [Unknown]
  - Developmental delay [Unknown]
  - Poor sucking reflex [Unknown]
  - Tremor neonatal [Unknown]
  - Behaviour disorder [Unknown]
